FAERS Safety Report 5755200-5 (Version None)
Quarter: 2008Q2

REPORT INFORMATION
  Report Type: 
  Country: None (occurrence: None)
  Receive Date: 20080602
  Receipt Date: 20080519
  Transmission Date: 20081010
  Serious: Yes (Other)
  Sender: FDA-Public Use
  Company Number: ES-BAYER-200818672GPV

PATIENT
  Age: 74 Year
  Sex: Male

DRUGS (4)
  1. ASPIRIN [Suspect]
     Indication: DRUG USE FOR UNKNOWN INDICATION
     Route: 048
     Dates: start: 20070226
  2. PLAVIX [Suspect]
     Indication: PERIPHERAL ISCHAEMIA
     Route: 048
     Dates: start: 20060326, end: 20070307
  3. ANAGASTRA/ PANTOPRAZOL [Concomitant]
     Indication: DRUG USE FOR UNKNOWN INDICATION
     Route: 048
     Dates: start: 20061219
  4. FORTZAAR/ HYDROCLOROTIAZIDE+ LOSARTAN [Concomitant]
     Indication: DRUG USE FOR UNKNOWN INDICATION
     Route: 048
     Dates: start: 20070226

REACTIONS (2)
  - HEADACHE [None]
  - RECTAL HAEMORRHAGE [None]
